FAERS Safety Report 14769656 (Version 1)
Quarter: 2018Q2

REPORT INFORMATION
  Report Type: Spontaneous
  Country: RU (occurrence: RU)
  Receive Date: 20180417
  Receipt Date: 20180417
  Transmission Date: 20180711
  Serious: Yes (Hospitalization, Other)
  Sender: FDA-Public Use
  Company Number: RU-ASTRAZENECA-2017SF07432

PATIENT
  Age: 76 Year
  Sex: Female
  Weight: 67 kg

DRUGS (9)
  1. BRILINTA [Suspect]
     Active Substance: TICAGRELOR
     Indication: MYOCARDIAL INFARCTION
     Route: 048
     Dates: start: 20170701
  2. OMEPRAZOL [Concomitant]
     Active Substance: OMEPRAZOLE
  3. LERCANIDIPINE [Concomitant]
     Active Substance: LERCANIDIPINE
  4. LORISTA [Concomitant]
     Active Substance: LOSARTAN POTASSIUM
  5. CONCOR [Concomitant]
     Active Substance: BISOPROLOL FUMARATE
  6. ATORIS [Concomitant]
     Active Substance: ATORVASTATIN CALCIUM
  7. INDAPAMIDE. [Concomitant]
     Active Substance: INDAPAMIDE
  8. ASPIRIN. [Concomitant]
     Active Substance: ASPIRIN
  9. PERINDOPRIL [Concomitant]
     Active Substance: PERINDOPRIL

REACTIONS (3)
  - Acute coronary syndrome [Recovered/Resolved]
  - Blood pressure decreased [Not Recovered/Not Resolved]
  - Contusion [Not Recovered/Not Resolved]

NARRATIVE: CASE EVENT DATE: 20170721
